FAERS Safety Report 17558170 (Version 3)
Quarter: 2020Q3

REPORT INFORMATION
  Report Type: Spontaneous
  Country: SE (occurrence: SE)
  Receive Date: 20200318
  Receipt Date: 20200910
  Transmission Date: 20201102
  Serious: Yes (Hospitalization, Other)
  Sender: FDA-Public Use
  Company Number: SE-MYLANLABS-2020M1028824

PATIENT
  Age: 5 Decade
  Sex: Female

DRUGS (4)
  1. LOPERAMIDE [Suspect]
     Active Substance: LOPERAMIDE
     Indication: DIARRHOEA
     Dosage: 48?160 TABLET OF 2 MG (96?320MG) PER DAY
     Route: 048
  2. PROPOFOL. [Concomitant]
     Active Substance: PROPOFOL
     Dosage: UNK
  3. DIMOR [Suspect]
     Active Substance: LOPERAMIDE
     Indication: PRODUCT USED FOR UNKNOWN INDICATION
     Dosage: UNK
  4. LOPERAMIDE [Suspect]
     Active Substance: LOPERAMIDE
     Dosage: 48?160 TABLET OF 2 MG (96?320MG) DAILY, THREE TO 10 PACKAGES DAILY
     Route: 065

REACTIONS (6)
  - Drug abuse [Unknown]
  - Drug dependence [Not Recovered/Not Resolved]
  - Cardiac arrest [Recovered/Resolved]
  - Overdose [Unknown]
  - Electrocardiogram QT prolonged [Recovered/Resolved]
  - Torsade de pointes [Recovered/Resolved]

NARRATIVE: CASE EVENT DATE: 20190502
